FAERS Safety Report 21877376 (Version 2)
Quarter: 2023Q1

REPORT INFORMATION
  Report Type: Spontaneous
  Country: IS (occurrence: IS)
  Receive Date: 20230118
  Receipt Date: 20230321
  Transmission Date: 20230418
  Serious: Yes (Other)
  Sender: FDA-Public Use
  Company Number: IS-SAMSUNG BIOEPIS-SB-2023-01628

PATIENT
  Age: 46 Year
  Sex: Male

DRUGS (1)
  1. INFLIXIMAB [Suspect]
     Active Substance: INFLIXIMAB
     Indication: Product used for unknown indication
     Dosage: VIAL
     Route: 042

REACTIONS (4)
  - Throat irritation [Unknown]
  - Throat tightness [Unknown]
  - Tremor [Unknown]
  - Feeling cold [Unknown]

NARRATIVE: CASE EVENT DATE: 20221202
